FAERS Safety Report 5950418-0 (Version None)
Quarter: 2008Q4

REPORT INFORMATION
  Report Type: 
  Country: None (occurrence: None)
  Receive Date: 20081112
  Receipt Date: 20081104
  Transmission Date: 20090506
  Serious: Yes (Hospitalization)
  Sender: FDA-Public Use
  Company Number: JP-MERCK-0811USA00560

PATIENT
  Age: 35 Year
  Sex: Male

DRUGS (4)
  1. SINGULAIR [Suspect]
     Indication: ASTHMA
     Route: 048
     Dates: start: 20081003, end: 20081008
  2. CLARITIN [Concomitant]
     Route: 048
     Dates: start: 20081003, end: 20081008
  3. HOKUNALIN [Concomitant]
     Route: 061
     Dates: start: 20081003, end: 20081008
  4. FLUTIDE [Concomitant]
     Dates: start: 20081003, end: 20081008

REACTIONS (1)
  - RHABDOMYOLYSIS [None]
